FAERS Safety Report 9557946 (Version 1)
Quarter: 2013Q3

REPORT INFORMATION
  Report Type: Spontaneous
  Country: US (occurrence: None)
  Receive Date: 20130724
  Receipt Date: 20130724
  Transmission Date: 20140515
  Serious: Yes (Other)
  Sender: FDA-Public Use
  Company Number: PHEH2012US018588

PATIENT
  Sex: Male

DRUGS (3)
  1. DIOVAN HCT [Suspect]
  2. PRAVASTATIN (PRAVASTATIN) [Concomitant]
  3. VERAPAMIL (VERAPAMIL) [Concomitant]

REACTIONS (4)
  - Pharyngeal oedema [None]
  - Dysphonia [None]
  - Blood pressure inadequately controlled [None]
  - Oropharyngeal pain [None]
